FAERS Safety Report 18923188 (Version 1)
Quarter: 2021Q1

REPORT INFORMATION
  Report Type: Spontaneous
  Country: NO (occurrence: NO)
  Receive Date: 20210222
  Receipt Date: 20210222
  Transmission Date: 20210420
  Serious: Yes (Life-Threatening)
  Sender: FDA-Public Use
  Company Number: NO-TEVA-2021-NO-1881719

PATIENT
  Age: 36 Year
  Sex: Female

DRUGS (4)
  1. TRAMADOL ACTAVIS KAPS 50 MG [Suspect]
     Active Substance: TRAMADOL
     Indication: PAIN
  2. LEVAXIN TAB 125 MIKROG [Concomitant]
     Indication: HYPOTHYROIDISM
     Dosage: 125 MCG X 1
  3. HUMALOG INJ VAESKE 100 E/ML [Concomitant]
     Indication: TYPE 1 DIABETES MELLITUS
     Dates: start: 1997
  4. AERIUS TAB 5 MG [Concomitant]
     Indication: HYPERSENSITIVITY
     Dosage: 5 MG X 1

REACTIONS (1)
  - Blood glucose decreased [Not Recovered/Not Resolved]
